FAERS Safety Report 6108004-8 (Version None)
Quarter: 2009Q1

REPORT INFORMATION
  Report Type: 
  Country: None (occurrence: None)
  Receive Date: 20090309
  Receipt Date: 20090206
  Transmission Date: 20090719
  Serious: No
  Sender: FDA-Public Use
  Company Number: US-BAYER-200910523BCC

PATIENT
  Age: 54 Year
  Sex: Male
  Weight: 102 kg

DRUGS (3)
  1. ALEVE [Suspect]
     Indication: ARTHRITIS
     Dosage: TOTAL DAILY DOSE: 220 MG  UNIT DOSE: 220 MG
     Dates: start: 20090125
  2. ALEVE [Suspect]
     Dosage: TOTAL DAILY DOSE: 220 MG  UNIT DOSE: 220 MG
     Dates: start: 20090128
  3. ALEVE [Suspect]
     Dosage: UNIT DOSE: 220 MG
     Dates: start: 20090201

REACTIONS (1)
  - ARTHRITIS [None]
